FAERS Safety Report 11910174 (Version 20)
Quarter: 2021Q4

REPORT INFORMATION
  Report Type: Spontaneous
  Country: US (occurrence: US)
  Receive Date: 20160112
  Receipt Date: 20211001
  Transmission Date: 20220303
  Serious: Yes (Other)
  Sender: FDA-Public Use
  Company Number: US-PFIZER INC-2015477841

PATIENT
  Age: 60 Year
  Sex: Female
  Weight: 86.17 kg

DRUGS (4)
  1. LYRICA [Suspect]
     Active Substance: PREGABALIN
     Indication: Fibromyalgia
     Dosage: 125 MG (5 CAPSULES OF 25 MG), AT BEDTIME
     Route: 048
     Dates: start: 2015
  2. LYRICA [Suspect]
     Active Substance: PREGABALIN
     Indication: Myalgia
     Dosage: 150 MG (6 CAPSULES OF 25 MG), TWICE DAILY
     Route: 048
  3. LYRICA [Suspect]
     Active Substance: PREGABALIN
     Indication: Post laminectomy syndrome
  4. HYDROCODONE [Concomitant]
     Active Substance: HYDROCODONE
     Indication: Fibromyalgia
     Dosage: UNK

REACTIONS (4)
  - Breast cancer [Unknown]
  - Hypersomnia [Unknown]
  - Depression [Unknown]
  - Somnolence [Unknown]
